FAERS Safety Report 13359028 (Version 1)
Quarter: 2017Q1

REPORT INFORMATION
  Report Type: Spontaneous
  Country: DE (occurrence: DE)
  Receive Date: 20170322
  Receipt Date: 20170322
  Transmission Date: 20170429
  Serious: Yes (Hospitalization)
  Sender: FDA-Public Use
  Company Number: DE-PFIZER INC-2017120710

PATIENT
  Sex: Female

DRUGS (1)
  1. RAMILICH [Suspect]
     Active Substance: RAMIPRIL
     Dosage: UNK
     Route: 048
     Dates: start: 201702

REACTIONS (4)
  - Fall [Not Recovered/Not Resolved]
  - Dizziness [Unknown]
  - Gait disturbance [Unknown]
  - Mouth swelling [Not Recovered/Not Resolved]

NARRATIVE: CASE EVENT DATE: 201703
